FAERS Safety Report 5446808-5 (Version None)
Quarter: 2007Q3

REPORT INFORMATION
  Report Type: 
  Country: None (occurrence: None)
  Receive Date: 20070907
  Receipt Date: 20070828
  Transmission Date: 20080115
  Serious: Yes (Other)
  Sender: FDA-Public Use
  Company Number: US-PFIZER INC-2007072630

PATIENT
  Sex: Male
  Weight: 117.9 kg

DRUGS (6)
  1. CHANTIX [Suspect]
     Indication: SMOKING CESSATION THERAPY
     Dates: start: 20070808, end: 20070827
  2. ZANTAC 150 [Concomitant]
  3. LOTREL [Concomitant]
  4. PREVACID [Concomitant]
  5. PERCOCET [Concomitant]
  6. ASPIRIN [Concomitant]

REACTIONS (4)
  - HALLUCINATION [None]
  - HYPOAESTHESIA [None]
  - INSOMNIA [None]
  - NIGHTMARE [None]
